FAERS Safety Report 9587212 (Version 1)
Quarter: 2013Q4

REPORT INFORMATION
  Report Type: Spontaneous
  Country: US (occurrence: US)
  Receive Date: 20131003
  Receipt Date: 20131003
  Transmission Date: 20140711
  Serious: Yes (Life-Threatening, Hospitalization, Other)
  Sender: FDA-Public Use
  Company Number: US-ACTAVIS-2013-17075

PATIENT
  Age: 40 Year
  Sex: Female

DRUGS (3)
  1. FIORICET 50/325/40 (WATSON LABORATORIES) [Suspect]
     Indication: OVERDOSE
     Dosage: 100 TABLETS
     Route: 048
  2. OXYCODONE HYDROCHLORIDE (ATLLC) [Suspect]
     Indication: DRUG ABUSE
     Dosage: UNK
     Route: 048
  3. FENTANYL UNKNOWN STRENGTH (WATSON LABORATORIES) [Suspect]
     Indication: DRUG ABUSE
     Dosage: UNK
     Route: 062

REACTIONS (9)
  - Electrocardiogram QT prolonged [Unknown]
  - Loss of consciousness [Recovered/Resolved]
  - Hypokalaemia [Recovered/Resolved]
  - Convulsion [Recovered/Resolved]
  - Metabolic acidosis [Unknown]
  - Polyuria [Recovered/Resolved]
  - Salivary hypersecretion [Unknown]
  - Overdose [Unknown]
  - Drug abuse [Unknown]
